FAERS Safety Report 8369657-7 (Version None)
Quarter: 2012Q2

REPORT INFORMATION
  Report Type: 
  Country: None (occurrence: None)
  Receive Date: 20120518
  Receipt Date: 20120510
  Transmission Date: 20120825
  Serious: Yes (Hospitalization)
  Sender: FDA-Public Use
  Company Number: DE-UCBSA-036846

PATIENT
  Sex: Female
  Weight: 67 kg

DRUGS (10)
  1. DEKRISTOL [Concomitant]
     Indication: OSTEOPOROSIS
     Dosage: QS
     Dates: start: 20101215
  2. ARCOXIA [Concomitant]
     Indication: RHEUMATOID ARTHRITIS
     Dates: start: 20110207
  3. PANTOPRAZOLE [Concomitant]
     Dosage: 40 1X1
  4. TEBESIUM [Concomitant]
     Indication: ANTIBIOTIC PROPHYLAXIS
     Dates: start: 20100506, end: 20110201
  5. CIMZIA [Suspect]
     Indication: RHEUMATOID ARTHRITIS
     Dosage: NUMBER OF DOSES RECEIVED: 22
     Route: 058
     Dates: start: 20100430, end: 20110201
  6. METHOTREXATE SODIUM [Concomitant]
     Indication: RHEUMATOID ARTHRITIS
     Dosage: QS
     Route: 051
     Dates: start: 20050414
  7. ENOXAPARIN SODIUM [Concomitant]
     Indication: THROMBOSIS PROPHYLAXIS
     Dates: start: 20110201, end: 20110801
  8. PREDNISOLONE [Concomitant]
     Indication: RHEUMATOID ARTHRITIS
     Dates: start: 20060515
  9. METHOTREXATE SODIUM [Concomitant]
     Dosage: 20 MG/W
     Dates: start: 20110201
  10. PALLADONE [Concomitant]
     Dosage: 1.3 MG TABLET UPTO 4X1 MAX EVERY 6 HRS

REACTIONS (3)
  - PELVIC FRACTURE [None]
  - JOINT ARTHROPLASTY [None]
  - POSTOPERATIVE WOUND INFECTION [None]
